FAERS Safety Report 9241498 (Version 3)
Quarter: 2019Q1

REPORT INFORMATION
  Report Type: Spontaneous
  Country: FR (occurrence: FR)
  Receive Date: 20130419
  Receipt Date: 20190315
  Transmission Date: 20190418
  Serious: Yes (Hospitalization, Other)
  Sender: FDA-Public Use
  Company Number: FR-PFIZER INC-2013121814

PATIENT
  Age: 48 Year
  Sex: Female

DRUGS (3)
  1. IBUPROFEN. [Suspect]
     Active Substance: IBUPROFEN
     Indication: TENDONITIS
     Dosage: UNK (2 WEEKS BEFORE ADMISSION)
  2. ALPRAZOLAM. [Concomitant]
     Active Substance: ALPRAZOLAM
     Indication: DEPRESSION
     Dosage: UNK (UNSPECIFIED, FOR 2 WEEKS, 6 WEEKS BEFORE, FOR 1 DAY)
  3. FLUOXETINE [Concomitant]
     Active Substance: FLUOXETINE HYDROCHLORIDE
     Indication: DEPRESSION
     Dosage: UNK (UNSPECIFIED, FOR 2 WEEKS, 4 WEEKS BEFORE, FOR 1 DAY)

REACTIONS (5)
  - Tubulointerstitial nephritis [Recovering/Resolving]
  - Myocarditis [Recovering/Resolving]
  - Drug reaction with eosinophilia and systemic symptoms [Recovered/Resolved]
  - Retinal pigment epitheliopathy [Recovered/Resolved]
  - Acute kidney injury [Recovering/Resolving]
